FAERS Safety Report 7580853-9 (Version None)
Quarter: 2011Q2

REPORT INFORMATION
  Report Type: 
  Country: None (occurrence: None)
  Receive Date: 20110629
  Receipt Date: 20110628
  Transmission Date: 20111010
  Serious: Yes (Hospitalization)
  Sender: FDA-Public Use
  Company Number: GB-BRISTOL-MYERS SQUIBB COMPANY-15797368

PATIENT
  Age: 66 Year
  Sex: Female

DRUGS (10)
  1. PREDNISOLONE [Concomitant]
     Dates: start: 20080409
  2. ASPIRIN [Concomitant]
     Dates: start: 20010212
  3. FOLIC ACID [Concomitant]
     Dates: start: 20060801
  4. CALCIUM + VITAMIN D [Concomitant]
     Dates: start: 20080601
  5. METHOTREXATE [Suspect]
     Indication: RHEUMATOID ARTHRITIS
     Route: 048
     Dates: start: 20070123
  6. LEVOTHYROXINE SODIUM [Concomitant]
     Dates: start: 20000101
  7. PERINDOPRIL ERBUMINE [Concomitant]
     Dates: start: 20010212
  8. ETODOLAC [Concomitant]
     Dates: start: 20060601
  9. ABATACEPT [Suspect]
     Indication: RHEUMATOID ARTHRITIS
  10. ATORVASTATIN [Concomitant]
     Dates: start: 20010212

REACTIONS (1)
  - COLITIS ISCHAEMIC [None]
